FAERS Safety Report 16692825 (Version 1)
Quarter: 2019Q3

REPORT INFORMATION
  Report Type: Report from Study
  Country: JP (occurrence: JP)
  Receive Date: 20190812
  Receipt Date: 20190812
  Transmission Date: 20191004
  Serious: Yes (Other)
  Sender: FDA-Public Use
  Company Number: JP-JNJFOC-20190810033

PATIENT

DRUGS (1)
  1. IMBRUVICA [Suspect]
     Active Substance: IBRUTINIB
     Indication: PRODUCT USED FOR UNKNOWN INDICATION
     Dosage: IBRUTINIB:140MG
     Route: 048

REACTIONS (5)
  - Infection [Unknown]
  - Neutropenia [Unknown]
  - Haemorrhage [Unknown]
  - Nausea [Unknown]
  - Atrial fibrillation [Unknown]
